FAERS Safety Report 16855060 (Version 1)
Quarter: 2019Q3

REPORT INFORMATION
  Report Type: Spontaneous
  Country: FR (occurrence: FR)
  Receive Date: 20190926
  Receipt Date: 20190926
  Transmission Date: 20191005
  Serious: Yes (Other)
  Sender: FDA-Public Use
  Company Number: FR-AUROBINDO-AUR-APL-2019-062492

PATIENT
  Age: 53 Year
  Sex: Male
  Weight: 107.5 kg

DRUGS (2)
  1. GEMCITABINE. [Suspect]
     Active Substance: GEMCITABINE
     Indication: HEPATIC CANCER
     Dosage: 2000 MILLIGRAM, 15 DAY
     Route: 042
     Dates: start: 20180928
  2. OXALIPLATIN. [Suspect]
     Active Substance: OXALIPLATIN
     Indication: HEPATIC CANCER
     Dosage: 200 MILLIGRAM, 15 DAY
     Route: 042
     Dates: start: 20180928, end: 20190215

REACTIONS (1)
  - Bronchospasm [Recovered/Resolved]

NARRATIVE: CASE EVENT DATE: 20190215
